FAERS Safety Report 9169183 (Version 3)
Quarter: 2013Q3

REPORT INFORMATION
  Report Type: Report from Study
  Country: HK (occurrence: HK)
  Receive Date: 20130318
  Receipt Date: 20130919
  Transmission Date: 20140515
  Serious: Yes (Hospitalization)
  Sender: FDA-Public Use
  Company Number: HK-BRISTOL-MYERS SQUIBB COMPANY-17449703

PATIENT
  Age: 48 Year
  Sex: Female
  Weight: 64 kg

DRUGS (17)
  1. PACLITAXEL [Suspect]
     Indication: OVARIAN CANCER
     Dosage: 24MAY2011(280MG,1 IN 3WK)?24MAR11-13JUN11?21JUN11-01DEC11
     Route: 042
     Dates: start: 20110524, end: 20111201
  2. CARBOPLATIN [Suspect]
     Indication: OVARIAN CANCER
     Dosage: 750MG,1 IN 3WK?24MAY11-13JUN11?21JUN11-01DEC11:164 DAYS
     Route: 042
     Dates: start: 20110524, end: 20111201
  3. BEVACIZUMAB [Suspect]
     Indication: OVARIAN CANCER
     Dosage: 24MAY11:950MG,1 IN 3 WKS?24MAY11-13JUN11?21JUN11-01DEC11:164DYS
     Dates: start: 20110524
  4. CIMETIDINE [Concomitant]
  5. DICLOFENAC [Concomitant]
  6. MEFENAMIC ACID [Concomitant]
  7. MAXOLON [Concomitant]
     Dates: start: 20110715, end: 20110715
  8. FILGRASTIM [Concomitant]
     Dosage: DOSE:30(UNITS NOS).
     Dates: start: 20110715, end: 20110721
  9. CHLORHEXIDINE GLUCONATE [Concomitant]
     Dosage: DOSE:2 APP
     Dates: start: 20110706
  10. LEVOFLOXACIN [Concomitant]
     Dates: start: 20110715, end: 20110723
  11. PEPCIDINE [Concomitant]
     Dates: start: 20110715, end: 20110716
  12. LAMIVUDINE [Concomitant]
     Dates: start: 20110523, end: 20130518
  13. G-CSF [Concomitant]
     Dates: start: 20110527, end: 20110602
  14. OXETACAINE [Concomitant]
  15. ALUMINIUM HYDROXIDE [Concomitant]
  16. MAGNESIUM HYDROXIDE [Concomitant]
  17. PHENSEDYL [Concomitant]
     Dates: start: 20110703, end: 20110706

REACTIONS (5)
  - Pulmonary tuberculosis [Recovered/Resolved]
  - Infection [Recovered/Resolved]
  - Pyrexia [Recovered/Resolved]
  - Syncope [Recovered/Resolved]
  - Urinary tract infection [Recovered/Resolved]
